FAERS Safety Report 7725047-9 (Version None)
Quarter: 2011Q3

REPORT INFORMATION
  Report Type: 
  Country: None (occurrence: None)
  Receive Date: 20110901
  Receipt Date: 20110829
  Transmission Date: 20111222
  Serious: Yes (Other)
  Sender: FDA-Public Use
  Company Number: JP-PFIZER INC-2011201374

PATIENT
  Age: 76 Year
  Sex: Male

DRUGS (6)
  1. ZOLPIDEM [Concomitant]
     Dosage: 10 DAILY
     Route: 048
     Dates: start: 20080101
  2. LYRICA [Suspect]
     Indication: HYPOAESTHESIA
     Dosage: 150MG DAILY
     Route: 048
     Dates: start: 20110307, end: 20110430
  3. SPIRIVA [Concomitant]
     Dosage: UNK
     Route: 048
     Dates: start: 20090901
  4. METHISTA [Concomitant]
     Dosage: 500 DAILY
     Route: 048
     Dates: start: 20080101
  5. LANSOPRAZOLE [Concomitant]
     Dosage: 15 DAILY
     Route: 048
     Dates: start: 20080101
  6. LYRICA [Suspect]
     Dosage: 300MG DAILY
     Route: 048
     Dates: start: 20110730, end: 20110801

REACTIONS (3)
  - ROAD TRAFFIC ACCIDENT [None]
  - DRUG INEFFECTIVE [None]
  - DIPLOPIA [None]
